FAERS Safety Report 11953828 (Version 2)
Quarter: 2016Q1

REPORT INFORMATION
  Report Type: Spontaneous
  Country: US (occurrence: US)
  Receive Date: 20160126
  Receipt Date: 20160330
  Transmission Date: 20160526
  Serious: No
  Sender: FDA-Public Use
  Company Number: US-PFIZER INC-2016018189

PATIENT
  Age: 62 Year
  Sex: Female

DRUGS (3)
  1. XGEVA [Concomitant]
     Active Substance: DENOSUMAB
     Indication: METASTASES TO SPINE
     Dosage: UNK
  2. SUTENT [Suspect]
     Active Substance: SUNITINIB MALATE
     Indication: RENAL CELL CARCINOMA
     Dosage: 50 MG DAILY FOR 4 WEEKS THEN 2 WEEKS OFF
     Route: 048
     Dates: start: 201512, end: 20160131
  3. PERCOCET [Concomitant]
     Active Substance: ACETAMINOPHEN\OXYCODONE HYDROCHLORIDE
     Dosage: UNK

REACTIONS (1)
  - Pain in extremity [Unknown]

NARRATIVE: CASE EVENT DATE: 201512
